FAERS Safety Report 25539719 (Version 1)
Quarter: 2025Q3

REPORT INFORMATION
  Report Type: Spontaneous
  Country: IN (occurrence: IN)
  Receive Date: 20250710
  Receipt Date: 20250710
  Transmission Date: 20251020
  Serious: Yes (Death, Other)
  Sender: PFIZER
  Company Number: IN-PFIZER INC-PV202500082204

PATIENT
  Weight: 2.12 kg

DRUGS (2)
  1. CYTARABINE [Suspect]
     Active Substance: CYTARABINE
     Indication: Myeloproliferative neoplasm
  2. CYTARABINE [Suspect]
     Active Substance: CYTARABINE

REACTIONS (3)
  - Hepatic failure [Fatal]
  - Myelosuppression [Unknown]
  - Off label use [Unknown]
